FAERS Safety Report 21303062 (Version 1)
Quarter: 2022Q3

REPORT INFORMATION
  Report Type: Spontaneous
  Country: CA (occurrence: CA)
  Receive Date: 20220907
  Receipt Date: 20220907
  Transmission Date: 20221027
  Serious: Yes (Other)
  Sender: FDA-Public Use
  Company Number: CA-JNJFOC-20220905108

PATIENT
  Age: 54 Year
  Sex: Male
  Weight: 74 kg

DRUGS (9)
  1. REMICADE [Suspect]
     Active Substance: INFLIXIMAB
     Indication: Inflammatory bowel disease
     Route: 041
  2. REMICADE [Suspect]
     Active Substance: INFLIXIMAB
     Indication: Colitis ulcerative
  3. INFLIXIMAB [Suspect]
     Active Substance: INFLIXIMAB
     Indication: Inflammatory bowel disease
     Route: 042
  4. INFLIXIMAB [Suspect]
     Active Substance: INFLIXIMAB
     Indication: Colitis ulcerative
  5. MESALAMINE [Concomitant]
     Active Substance: MESALAMINE
  6. METHOTREXATE [Concomitant]
     Active Substance: METHOTREXATE
     Route: 048
  7. MESALAMINE [Concomitant]
     Active Substance: MESALAMINE
  8. PREDNISONE [Concomitant]
     Active Substance: PREDNISONE
  9. VANCOMYCIN [Concomitant]
     Active Substance: VANCOMYCIN

REACTIONS (4)
  - Infusion related reaction [Recovered/Resolved]
  - COVID-19 [Recovered/Resolved]
  - Drug specific antibody present [Recovered/Resolved]
  - Pruritus [Recovered/Resolved]
